FAERS Safety Report 4304155-9 (Version None)
Quarter: 2004Q1

REPORT INFORMATION
  Report Type: 
  Country: None (occurrence: None)
  Receive Date: 20040225
  Receipt Date: 20040223
  Transmission Date: 20041129
  Serious: Yes (Death)
  Sender: FDA-Public Use
  Company Number: 04-01-0030

PATIENT
  Age: 83 Year
  Sex: Female
  Weight: 66.6788 kg

DRUGS (7)
  1. CLOZAPINE [Suspect]
     Indication: SCHIZOPHRENIA
     Dosage: 75 MG AM ORAL
     Route: 048
     Dates: start: 20011101, end: 20031101
  2. ABILIFY [Concomitant]
  3. LOXAPINE [Concomitant]
  4. ATENOLOL [Concomitant]
  5. ASPIRIN [Concomitant]
  6. SINEMET [Concomitant]
  7. FOLIC ACID [Concomitant]

REACTIONS (1)
  - ACUTE MYOCARDIAL INFARCTION [None]
